FAERS Safety Report 7746309-5 (Version None)
Quarter: 2011Q3

REPORT INFORMATION
  Report Type: 
  Country: None (occurrence: None)
  Receive Date: 20110913
  Receipt Date: 20110905
  Transmission Date: 20111222
  Serious: Yes (Other)
  Sender: FDA-Public Use
  Company Number: US-ROCHE-800459

PATIENT

DRUGS (2)
  1. PEGINTERFERON ALFA-2B [Suspect]
     Route: 065
  2. RIBAVIRIN [Suspect]
     Route: 065

REACTIONS (8)
  - LEUKOPENIA [None]
  - ANAEMIA [None]
  - HAEMOGLOBIN DECREASED [None]
  - CARDIOVASCULAR DISORDER [None]
  - NEUTROPHIL COUNT DECREASED [None]
  - PLATELET COUNT DECREASED [None]
  - THROMBOCYTOPENIA [None]
  - MENTAL DISORDER [None]
